FAERS Safety Report 4804803-0 (Version None)
Quarter: 2005Q4

REPORT INFORMATION
  Report Type: 
  Country: None (occurrence: None)
  Receive Date: 20051020
  Receipt Date: 20041102
  Transmission Date: 20060501
  Serious: Yes (Life-Threatening, Hospitalization)
  Sender: FDA-Public Use
  Company Number: AU-SANOFI-SYNTHELABO-F01200403435

PATIENT
  Sex: Male

DRUGS (10)
  1. OXALIPLATIN [Suspect]
     Indication: COLORECTAL CANCER METASTATIC
     Route: 042
  2. FLUOROURACIL [Suspect]
     Dosage: 800 MG IV BOLUS, 1230 MG IV CONTINUOUS INFUSION, Q2W
     Route: 042
  3. LEUCOVORIN [Suspect]
     Route: 042
  4. BEVACIZUMAB OR PLACEBO [Suspect]
     Route: 042
  5. METOPROLOL [Concomitant]
     Dosage: UNK
     Route: 065
     Dates: start: 20040820
  6. LIPEX [Concomitant]
     Dosage: UNK
     Route: 065
     Dates: start: 20040820
  7. NIFEDIPINE [Concomitant]
     Dosage: UNK
     Route: 065
     Dates: start: 20040820
  8. NITRAZEPAM [Concomitant]
     Dosage: UNK
     Route: 065
     Dates: start: 20040820
  9. CALCITRIOL [Concomitant]
     Dosage: UNK
     Route: 065
     Dates: start: 20040820
  10. WARFARIN [Concomitant]
     Dosage: UNK
     Route: 065
     Dates: start: 20040831

REACTIONS (8)
  - ACUTE RESPIRATORY DISTRESS SYNDROME [None]
  - ATRIAL FIBRILLATION [None]
  - BLOOD PRESSURE SYSTOLIC INCREASED [None]
  - CAMPYLOBACTER INTESTINAL INFECTION [None]
  - CULTURE STOOL POSITIVE [None]
  - DIARRHOEA [None]
  - INTESTINAL OBSTRUCTION [None]
  - PNEUMONIA ASPIRATION [None]
